FAERS Safety Report 17756842 (Version 1)
Quarter: 2020Q2

REPORT INFORMATION
  Report Type: Spontaneous
  Country: US (occurrence: DE)
  Receive Date: 20200507
  Receipt Date: 20200507
  Transmission Date: 20200714
  Serious: Yes (Death, Life-Threatening, Hospitalization, Other)
  Sender: FDA-Public Use
  Company Number: NVSC2018DE003648

PATIENT
  Age: 82 Year
  Sex: Female
  Weight: 71 kg

DRUGS (52)
  1. BISOPROLOL COMP [Concomitant]
     Dosage: UNK
     Route: 065
     Dates: start: 20130227, end: 20130414
  2. HCT HEXAL [Concomitant]
     Active Substance: HYDROCHLOROTHIAZIDE
     Indication: PRODUCT USED FOR UNKNOWN INDICATION
     Dosage: UNK, QD, ? TABLET OF 25 MG
     Route: 048
     Dates: start: 20180524, end: 20180524
  3. DEXAMETHASONE. [Concomitant]
     Active Substance: DEXAMETHASONE
     Indication: TUMOUR INFLAMMATION
     Dosage: 8 MG
     Route: 042
     Dates: start: 20181129
  4. DEXAMETHASONE. [Concomitant]
     Active Substance: DEXAMETHASONE
     Dosage: 4 UNK
     Dates: start: 201812
  5. CORTISONE ACETATE. [Concomitant]
     Active Substance: CORTISONE ACETATE
     Indication: DERMATOSIS
     Dosage: UNK, QD
  6. DIOVAN [Suspect]
     Active Substance: VALSARTAN
     Indication: PRODUCT USED FOR UNKNOWN INDICATION
     Dosage: UNK
     Route: 065
     Dates: start: 2011, end: 2013
  7. DIOVAN [Suspect]
     Active Substance: VALSARTAN
     Dosage: 2 DF, QD, (IN THE MORNING)
     Route: 065
     Dates: start: 201302
  8. DIOVAN [Suspect]
     Active Substance: VALSARTAN
     Dosage: 0.5 DF, QD IN THE MORNING
     Route: 065
     Dates: start: 201302
  9. VALSARTAN. [Suspect]
     Active Substance: VALSARTAN
     Indication: PRODUCT USED FOR UNKNOWN INDICATION
     Dosage: 160 MG, BID
     Route: 065
     Dates: start: 2005
  10. VALSARTAN. [Suspect]
     Active Substance: VALSARTAN
     Dosage: UNK
     Route: 065
     Dates: start: 2017, end: 2018
  11. VALSARTAN - 1 A PHARMA 160 MG FILMTABLETTEN [Suspect]
     Active Substance: VALSARTAN
     Dosage: 160 MG
     Route: 065
     Dates: start: 201312, end: 2017
  12. PREDNISOLONE. [Suspect]
     Active Substance: PREDNISOLONE
     Indication: PRODUCT USED FOR UNKNOWN INDICATION
     Route: 065
  13. DEXAMETHASONE. [Concomitant]
     Active Substance: DEXAMETHASONE
     Dosage: 8 MG, TID
     Route: 048
     Dates: start: 2018
  14. CLEXANE [Concomitant]
     Active Substance: ENOXAPARIN SODIUM
     Indication: SURGERY
     Dosage: 1 DF, QD
     Route: 058
     Dates: start: 201106
  15. DIOVAN [Suspect]
     Active Substance: VALSARTAN
     Dosage: 1 DF, QD (IN THE MORNING)
     Route: 065
     Dates: start: 2010, end: 2013
  16. VALSARTAN. [Suspect]
     Active Substance: VALSARTAN
     Dosage: 160 MG, BID, ONCE IN THE MORNING AND ONCE IN THE EVENING
     Route: 065
     Dates: start: 201005
  17. AMLODIPIN 5 MG [Suspect]
     Active Substance: AMLODIPINE BESYLATE
     Indication: PRODUCT USED FOR UNKNOWN INDICATION
     Dosage: 5 (UNKNOWN), ONCE IN THE MORNING, ONCE IN THE EVENING
     Route: 065
     Dates: start: 200803
  18. L-THYROX HEXAL125 MIKROGRAMM [Suspect]
     Active Substance: LEVOTHYROXINE SODIUM
     Indication: PRODUCT USED FOR UNKNOWN INDICATION
     Dosage: UNK
     Route: 065
     Dates: start: 2014, end: 2016
  19. HALOPERIDOL NEURAXPHARM [Concomitant]
     Indication: PRODUCT USED FOR UNKNOWN INDICATION
     Dosage: 30 ML
     Route: 065
     Dates: start: 201902
  20. FUROSEMID [Concomitant]
     Active Substance: FUROSEMIDE
     Indication: PRODUCT USED FOR UNKNOWN INDICATION
     Dosage: 40 MG, BID
     Route: 065
     Dates: start: 201903
  21. BISOPROLOL RATIOPHARM [Concomitant]
     Active Substance: BISOPROLOL
     Indication: PRODUCT USED FOR UNKNOWN INDICATION
     Dosage: 5 MG, QD
     Route: 048
     Dates: start: 20180524, end: 20180612
  22. VALSARTAN - 1 A PHARMA 160 MG FILMTABLETTEN [Suspect]
     Active Substance: VALSARTAN
     Indication: PRODUCT USED FOR UNKNOWN INDICATION
     Dosage: 160 MG, BID
     Route: 065
     Dates: start: 200502
  23. VALSARTAN HEXAL 320 MG FILMTABLETTEN [Suspect]
     Active Substance: VALSARTAN
     Indication: PRODUCT USED FOR UNKNOWN INDICATION
     Dosage: 0.5 DF, BID
     Route: 048
     Dates: start: 20180523, end: 20180612
  24. AMLODIPIN HEXAL [AMLODIPINE BESYLATE] [Suspect]
     Active Substance: AMLODIPINE BESYLATE
     Dosage: 5 MG, BID, TWICE DAILY (8 A.M., 6 P.M.), ONGOING AT DISCHARGE
     Route: 048
     Dates: start: 20180523, end: 20180612
  25. BISOPROLOL PLUS 10/25 - 1 A PHARMA [Suspect]
     Active Substance: BISOPROLOL FUMARATE\HYDROCHLOROTHIAZIDE
     Indication: PRODUCT USED FOR UNKNOWN INDICATION
     Dosage: UNK
     Route: 065
     Dates: start: 2014, end: 2018
  26. BISOPROLOL HCT SANDOZ 10/25 MG FILMTABLETTEN [Suspect]
     Active Substance: BISOPROLOL FUMARATE\HYDROCHLOROTHIAZIDE
     Indication: PRODUCT USED FOR UNKNOWN INDICATION
     Dosage: 0.5 DF, QD ONCE IN THE MORNING
     Route: 065
     Dates: start: 200903
  27. L-THYROX HEXAL 100MCG TABLETS [Suspect]
     Active Substance: LEVOTHYROXINE SODIUM
     Indication: PRODUCT USED FOR UNKNOWN INDICATION
     Dosage: 1.25 DF, QD (ONGOING AT DISCHARGE FROM REHABILITATION)
     Route: 048
     Dates: start: 20180524, end: 20180612
  28. VALSARTAN DURA [Concomitant]
     Active Substance: VALSARTAN
     Indication: PRODUCT USED FOR UNKNOWN INDICATION
     Dosage: 160 MG
     Route: 065
     Dates: start: 201702
  29. AMOXCLAV [Concomitant]
     Active Substance: AMOXICILLIN\CLAVULANIC ACID
     Indication: ABSCESS
     Dosage: 2 DF, QD (MORNING AND EVENING)
     Route: 065
     Dates: start: 20181231, end: 20190105
  30. DIOVAN [Suspect]
     Active Substance: VALSARTAN
     Dosage: 2 DF, BID (MORNING AND EVENING)
     Route: 065
     Dates: start: 2013, end: 201302
  31. DIOVAN [Suspect]
     Active Substance: VALSARTAN
     Dosage: 1 DF, QD (MORNING)
     Route: 065
     Dates: start: 201302
  32. DIOVAN [Suspect]
     Active Substance: VALSARTAN
     Dosage: 160 MG, QD, (IN THE MORNING)
     Route: 065
     Dates: start: 201302
  33. VALSARTAN HEXAL 160 MG FILMTABLETTEN [Suspect]
     Active Substance: VALSARTAN
     Indication: PRODUCT USED FOR UNKNOWN INDICATION
     Dosage: UNK
     Route: 065
     Dates: start: 2014
  34. AMLODIPIN HEXAL [AMLODIPINE BESYLATE] [Suspect]
     Active Substance: AMLODIPINE BESYLATE
     Indication: PRODUCT USED FOR UNKNOWN INDICATION
     Dosage: 5 MG
     Route: 065
     Dates: start: 2016, end: 2017
  35. ECURAL [Concomitant]
     Active Substance: MOMETASONE
     Indication: PRODUCT USED FOR UNKNOWN INDICATION
     Route: 065
  36. IBUPROFEN. [Concomitant]
     Active Substance: IBUPROFEN
     Indication: PRODUCT USED FOR UNKNOWN INDICATION
     Dosage: 400 UNK, BID, 1X 400 2X DAILY (MORNING AND EVENING)
     Route: 065
  37. BISOPROLOL COMP [Concomitant]
     Indication: PRODUCT USED FOR UNKNOWN INDICATION
     Dosage: UNK, QD, ?X 10/25 1X DAILY (MORNING)
     Route: 065
     Dates: start: 201302
  38. MOMETASONE [Concomitant]
     Active Substance: MOMETASONE
     Indication: PRODUCT USED FOR UNKNOWN INDICATION
     Dosage: 1 MG/G
     Route: 065
  39. DIGIMERCK MINOR [Concomitant]
     Active Substance: DIGITOXIN
     Indication: PRODUCT USED FOR UNKNOWN INDICATION
     Dosage: 0.07 UNK
     Route: 065
     Dates: start: 201901
  40. MACROGOL ABZ BALANCE [Concomitant]
     Indication: PRODUCT USED FOR UNKNOWN INDICATION
     Dosage: UNK, POWDER
     Route: 065
     Dates: start: 201902
  41. PENICILLIN V MEGA ^HEUMANN^ [Concomitant]
     Indication: ERYSIPELAS
     Dosage: 1 DF, TID
     Dates: start: 20151010
  42. PARACETAMOL 1 A PHARMA [Concomitant]
     Indication: PRODUCT USED FOR UNKNOWN INDICATION
     Dosage: 1000 MG
     Route: 065
     Dates: start: 201903
  43. MIDAZOLAM. [Concomitant]
     Active Substance: MIDAZOLAM
     Indication: PRODUCT USED FOR UNKNOWN INDICATION
     Dosage: 1 ML
     Route: 065
     Dates: start: 201903
  44. L THYROXIN HENNING [Concomitant]
     Active Substance: LEVOTHYROXINE SODIUM
     Indication: PRODUCT USED FOR UNKNOWN INDICATION
     Dosage: 125 UNK
     Dates: start: 2016
  45. TAVOR [Concomitant]
     Indication: PRODUCT USED FOR UNKNOWN INDICATION
     Dosage: 1 UNK
     Route: 065
     Dates: start: 201902
  46. VALSARTAN. [Suspect]
     Active Substance: VALSARTAN
     Dosage: 80 MG, BID
     Route: 065
     Dates: start: 2012
  47. PANTOPRAZOLE [Concomitant]
     Active Substance: PANTOPRAZOLE
     Indication: PRODUCT USED FOR UNKNOWN INDICATION
     Dosage: 40 UNK, QD, 1X 40 1X DAILY (MORNING) ENTERIC COATED TABLETS
     Route: 065
  48. FERROSANOL [Concomitant]
     Active Substance: FERROUS GLUCONATE
     Indication: PRODUCT USED FOR UNKNOWN INDICATION
     Dosage: 1 DF, QD (MORNING)
     Route: 065
  49. EUTHYROX [Concomitant]
     Active Substance: LEVOTHYROXINE SODIUM
     Indication: PRODUCT USED FOR UNKNOWN INDICATION
     Dosage: 125 UNK, QD, 1X 125 1X DAILY (MORNING)
     Route: 065
  50. FENTANYL CT [Concomitant]
     Indication: PRODUCT USED FOR UNKNOWN INDICATION
     Dosage: 12 UG/HR
     Route: 065
     Dates: start: 201903
  51. AMLODIPINE 1A PHARMA 5 [AMLODIPINE MESYLATE] [Suspect]
     Active Substance: AMLODIPINE MESYLATE
     Indication: PRODUCT USED FOR UNKNOWN INDICATION
     Dosage: 5 MG
     Route: 065
     Dates: start: 2013, end: 2018
  52. L-THYROXIN [Concomitant]
     Active Substance: LEVOTHYROXINE SODIUM
     Indication: PRODUCT USED FOR UNKNOWN INDICATION
     Dosage: 125 UNK, QD
     Route: 065
     Dates: start: 199003, end: 2018

REACTIONS (47)
  - Metastases to lung [Not Recovered/Not Resolved]
  - Osteoarthritis [Unknown]
  - Functional gastrointestinal disorder [Unknown]
  - Tinnitus [Unknown]
  - Arthralgia [Recovered/Resolved]
  - Drug intolerance [Not Recovered/Not Resolved]
  - Renal cell carcinoma [Not Recovered/Not Resolved]
  - Hypothyroidism [Unknown]
  - General physical health deterioration [Recovering/Resolving]
  - Melanocytic naevus [Unknown]
  - Metastases to lung [Not Recovered/Not Resolved]
  - White matter lesion [Unknown]
  - Confusional state [Unknown]
  - Cataract [Unknown]
  - Urinary retention [Unknown]
  - Nocturia [Unknown]
  - Abdominal pain [Unknown]
  - Death [Fatal]
  - Memory impairment [Recovering/Resolving]
  - Aphasia [Recovering/Resolving]
  - Disturbance in attention [Unknown]
  - Asthenia [Unknown]
  - Gait disturbance [Unknown]
  - Fatigue [Unknown]
  - Oedema peripheral [Recovered/Resolved]
  - Visual impairment [Unknown]
  - Diarrhoea [Unknown]
  - Inflammatory marker increased [Unknown]
  - Weight increased [Recovered/Resolved]
  - Cardiac failure [Unknown]
  - Gait disturbance [Unknown]
  - Nephrogenic anaemia [Unknown]
  - Dyspnoea [Unknown]
  - Large intestine polyp [Unknown]
  - Cognitive disorder [Recovering/Resolving]
  - Vomiting [Unknown]
  - Blood glucose abnormal [Unknown]
  - Haemorrhoids [Unknown]
  - Gastroenteritis [Unknown]
  - Arthralgia [Unknown]
  - Bradycardia [Unknown]
  - Postoperative renal failure [Unknown]
  - Pleural effusion [Recovered/Resolved]
  - Skin ulcer [Unknown]
  - Joint swelling [Unknown]
  - Insomnia [Unknown]
  - Ventricular extrasystoles [Unknown]

NARRATIVE: CASE EVENT DATE: 2013
